FAERS Safety Report 14678978 (Version 1)
Quarter: 2018Q1

REPORT INFORMATION
  Report Type: Spontaneous
  Country: IT (occurrence: IT)
  Receive Date: 20180326
  Receipt Date: 20180326
  Transmission Date: 20180509
  Serious: Yes (Other)
  Sender: FDA-Public Use
  Company Number: IT-CIPLA LTD.-2018IT12274

PATIENT

DRUGS (2)
  1. ABRAXANE [Suspect]
     Active Substance: PACLITAXEL
     Indication: PANCREATIC NEOPLASM
     Dosage: 200 MG, CYCLICAL
     Route: 042
     Dates: start: 20180205
  2. GEMCITABINE [Suspect]
     Active Substance: GEMCITABINE\GEMCITABINE HYDROCHLORIDE
     Indication: PANCREATIC NEOPLASM
     Dosage: 1600 MG,CYCLICAL
     Route: 042
     Dates: start: 20180205

REACTIONS (4)
  - Erythropenia [Unknown]
  - Thrombocytopenia [Unknown]
  - Leukopenia [Unknown]
  - Neutropenia [Unknown]

NARRATIVE: CASE EVENT DATE: 20180219
